FAERS Safety Report 11143327 (Version 1)
Quarter: 2015Q2

REPORT INFORMATION
  Report Type: Spontaneous
  Country: US (occurrence: US)
  Receive Date: 20150526
  Receipt Date: 20150526
  Transmission Date: 20150821
  Serious: No
  Sender: FDA-Public Use
  Company Number: US-B.I. PHARMACEUTICALS,INC./RIDGEFIELD-2015-BI-26000BP

PATIENT
  Age: 73 Year
  Sex: Female
  Weight: 109 kg

DRUGS (2)
  1. PRADAXA [Suspect]
     Active Substance: DABIGATRAN ETEXILATE MESYLATE
     Indication: HEART RATE IRREGULAR
     Dosage: 300 MG
     Route: 048
     Dates: start: 20150509
  2. METOPROLOL [Concomitant]
     Active Substance: METOPROLOL
     Indication: HYPERTENSION
     Dosage: 1 ANZ
     Route: 048

REACTIONS (3)
  - Dizziness [Not Recovered/Not Resolved]
  - Tremor [Recovered/Resolved]
  - Nervousness [Recovered/Resolved]

NARRATIVE: CASE EVENT DATE: 20150512
